FAERS Safety Report 7643759-2 (Version None)
Quarter: 2011Q3

REPORT INFORMATION
  Report Type: 
  Country: None (occurrence: None)
  Receive Date: 20110729
  Receipt Date: 20110706
  Transmission Date: 20111222
  Serious: No
  Sender: FDA-Public Use
  Company Number: US-B.I. PHARMACEUTICALS,INC./RIDGEFIELD-2011-BP-17072BP

PATIENT
  Sex: Male

DRUGS (2)
  1. METFORMIN HCL [Concomitant]
     Route: 048
  2. TRADJENTA [Suspect]
     Dosage: 5 MG

REACTIONS (1)
  - DIARRHOEA [None]
